FAERS Safety Report 5155702-9 (Version None)
Quarter: 2006Q4

REPORT INFORMATION
  Report Type: 
  Country: None (occurrence: None)
  Receive Date: 20061121
  Receipt Date: 20061116
  Transmission Date: 20070319
  Serious: Yes (Hospitalization)
  Sender: FDA-Public Use
  Company Number: ES-MERCK-0611ESP00011

PATIENT
  Sex: Male

DRUGS (4)
  1. PRIMAXIN [Suspect]
     Route: 042
     Dates: start: 20060906, end: 20060913
  2. NAPROSYN [Suspect]
     Route: 048
     Dates: start: 20060911, end: 20060913
  3. OMEPRAZOLE [Suspect]
     Route: 065
     Dates: start: 20060911, end: 20060913
  4. AUGMENTIN '125' [Concomitant]
     Route: 042
     Dates: end: 20060913

REACTIONS (1)
  - VASCULITIS [None]
